FAERS Safety Report 4525987-8 (Version None)
Quarter: 2004Q4

REPORT INFORMATION
  Report Type: 
  Country: None (occurrence: None)
  Receive Date: 20041214
  Receipt Date: 20041202
  Transmission Date: 20050328
  Serious: Yes (Life-Threatening, Hospitalization)
  Sender: FDA-Public Use
  Company Number: APCDSS2002001059

PATIENT
  Sex: Female
  Weight: 62 kg

DRUGS (16)
  1. REMICADE [Suspect]
     Indication: CROHN'S DISEASE
     Route: 041
     Dates: start: 20020903
  2. PREDONINE [Suspect]
     Indication: CROHN'S DISEASE
     Route: 041
  3. PREDONINE [Suspect]
     Route: 049
     Dates: start: 20020304
  4. PENTASA [Concomitant]
     Indication: CROHN'S DISEASE
     Route: 049
     Dates: start: 20020525
  5. MS CONTIN [Concomitant]
     Route: 049
     Dates: start: 20020801
  6. MS CONTIN [Concomitant]
     Indication: PAIN
     Route: 049
     Dates: start: 20020801
  7. PROTECADIN [Concomitant]
     Route: 049
     Dates: start: 20020329
  8. PROTECADIN [Concomitant]
     Route: 049
     Dates: start: 20020329
  9. ALUMINUM HYDROXIDE AND MAGNESIUM TRISILICATE [Concomitant]
     Route: 049
     Dates: start: 20020227
  10. ALUMINUM HYDROXIDE AND MAGNESIUM TRISILICATE [Concomitant]
     Route: 049
     Dates: start: 20020227
  11. SULPERAZON [Concomitant]
     Route: 041
     Dates: start: 20020903, end: 20020910
  12. SULPERAZON [Concomitant]
     Indication: DRUG USE FOR UNKNOWN INDICATION
     Route: 041
     Dates: start: 20020903, end: 20020910
  13. DECADRON [Concomitant]
     Indication: PREMEDICATION
     Route: 041
     Dates: start: 20020903
  14. METILON [Concomitant]
     Route: 065
     Dates: start: 20020818
  15. PARIET [Concomitant]
     Route: 049
  16. CENTRAL INTRAVENOUS NUTRITION MAINTENANCE [Concomitant]
     Route: 041

REACTIONS (11)
  - CONDITION AGGRAVATED [None]
  - CROHN'S DISEASE [None]
  - DISSEMINATED TUBERCULOSIS [None]
  - DUODENAL PERFORATION [None]
  - FUNGAEMIA [None]
  - ILEUS [None]
  - LUNG DISORDER [None]
  - OPPORTUNISTIC INFECTION [None]
  - PERITONITIS [None]
  - PNEUMONIA [None]
  - RESPIRATORY FAILURE [None]
